FAERS Safety Report 19713093 (Version 1)
Quarter: 2021Q3

REPORT INFORMATION
  Report Type: Spontaneous
  Country: US (occurrence: US)
  Receive Date: 20210817
  Receipt Date: 20210817
  Transmission Date: 20211014
  Serious: Yes (Other)
  Sender: FDA-Public Use
  Company Number: None

PATIENT
  Age: 35 Year
  Sex: Female
  Weight: 75.6 kg

DRUGS (1)
  1. ELURYNG [Suspect]
     Active Substance: ETHINYL ESTRADIOL\ETONOGESTREL
     Indication: CONTRACEPTION
     Dosage: ?          QUANTITY:1 RING;OTHER FREQUENCY:INSERT MONTHLY;?
     Route: 067
     Dates: start: 20210201, end: 20210817

REACTIONS (11)
  - Product complaint [None]
  - Product substitution issue [None]
  - Palpitations [None]
  - Fatigue [None]
  - Feeling abnormal [None]
  - Nipple pain [None]
  - Heart rate increased [None]
  - Weight increased [None]
  - Breast swelling [None]
  - Nausea [None]
  - Menstruation delayed [None]

NARRATIVE: CASE EVENT DATE: 20210816
